FAERS Safety Report 7758549-X (Version None)
Quarter: 2011Q3

REPORT INFORMATION
  Report Type: 
  Country: None (occurrence: None)
  Receive Date: 20110919
  Receipt Date: 20110906
  Transmission Date: 20111222
  Serious: Yes (Life-Threatening, Hospitalization, Other)
  Sender: FDA-Public Use
  Company Number: US-ELI_LILLY_AND_COMPANY-US201104002600

PATIENT
  Sex: Female

DRUGS (8)
  1. CYMBALTA [Suspect]
     Indication: BACK PAIN
     Dosage: 30 MG, QD
     Dates: start: 20030101
  2. CYMBALTA [Suspect]
     Dosage: 60 MG, QD
  3. OXYCODONE HCL [Concomitant]
     Indication: PAIN
  4. OXYCONTIN [Concomitant]
     Indication: PAIN
  5. CYMBALTA [Suspect]
     Dosage: 90 MG, QD
     Dates: end: 20101001
  6. CYMBALTA [Suspect]
     Dosage: 60 MG, QD
     Dates: end: 20110401
  7. PROZAC [Suspect]
  8. LEXAPRO [Concomitant]
     Dosage: 20 MG, UNK

REACTIONS (24)
  - HYSTERECTOMY [None]
  - DIZZINESS [None]
  - CARDIAC DISORDER [None]
  - PARAESTHESIA [None]
  - NAUSEA [None]
  - SEROTONIN SYNDROME [None]
  - PULMONARY FUNCTION TEST DECREASED [None]
  - TREMOR [None]
  - MOBILITY DECREASED [None]
  - FEELING ABNORMAL [None]
  - POST PROCEDURAL HAEMORRHAGE [None]
  - CHEST PAIN [None]
  - PANIC REACTION [None]
  - POST PROCEDURAL HAEMATOMA [None]
  - DRUG WITHDRAWAL SYNDROME [None]
  - MALAISE [None]
  - DYSPNOEA [None]
  - HYPERHIDROSIS [None]
  - CHEST DISCOMFORT [None]
  - CARPAL TUNNEL SYNDROME [None]
  - URINARY RETENTION [None]
  - DRUG PRESCRIBING ERROR [None]
  - SOMNOLENCE [None]
  - BODY TEMPERATURE FLUCTUATION [None]
